FAERS Safety Report 14317013 (Version 1)
Quarter: 2017Q4

REPORT INFORMATION
  Report Type: Report from Study
  Country: GB (occurrence: GB)
  Receive Date: 20171222
  Receipt Date: 20171222
  Transmission Date: 20180321
  Serious: Yes (Hospitalization)
  Sender: FDA-Public Use
  Company Number: PHHY2017GB158505

PATIENT
  Sex: Male

DRUGS (1)
  1. COSENTYX [Suspect]
     Active Substance: SECUKINUMAB
     Indication: ANKYLOSING SPONDYLITIS
     Dosage: 150 MG (ONCE MONTHLY FROM WEEK 4 AS DIRECTED)
     Route: 058
     Dates: start: 20170814

REACTIONS (2)
  - Malaise [Recovered/Resolved]
  - Lower respiratory tract infection [Recovered/Resolved]
